FAERS Safety Report 6945406-1 (Version None)
Quarter: 2010Q3

REPORT INFORMATION
  Report Type: 
  Country: None (occurrence: None)
  Receive Date: 20100827
  Receipt Date: 20100817
  Transmission Date: 20110219
  Serious: Yes (Hospitalization, Other)
  Sender: FDA-Public Use
  Company Number: PHHY2010DE01603

PATIENT
  Sex: Female
  Weight: 75 kg

DRUGS (10)
  1. ALISKIREN ALI+ [Suspect]
     Indication: HYPERTENSION
     Dosage: 300 MG, QD
     Dates: start: 20090101
  2. ASPIRIN [Suspect]
     Indication: CORONARY ARTERY DISEASE
     Dosage: 100 MG, QD
     Dates: start: 20030101
  3. PLAVIX [Suspect]
     Indication: CORONARY ARTERY DISEASE
     Dosage: 75 MG, QD
     Dates: start: 20070101, end: 20090501
  4. SIMVASTATIN [Suspect]
     Indication: HYPERLIPIDAEMIA
     Dosage: 20 MG, QD
     Dates: start: 20070101
  5. ANGIOTENSIN CONVERTING ENZYME BLOCKERS [Concomitant]
  6. ANTIDEPRESSANTS [Concomitant]
     Indication: DEPRESSION
  7. CARMEN [Concomitant]
     Indication: HYPERTENSION
     Dosage: 20 MG, QD
     Dates: start: 20080101
  8. METOHEXAL [Concomitant]
     Indication: HYPERTENSION
     Dosage: 200 MG, QD
     Dates: start: 20070101
  9. DIURETICS [Concomitant]
     Dosage: UNK
     Dates: start: 20090915
  10. ALPHA RECEPTOR BLOCKER [Concomitant]
     Dosage: UNK
     Dates: start: 20090915

REACTIONS (3)
  - ANGINA PECTORIS [None]
  - DYSPNOEA [None]
  - HYPERTENSIVE CRISIS [None]
